FAERS Safety Report 12000758 (Version 2)
Quarter: 2016Q2

REPORT INFORMATION
  Report Type: Spontaneous
  Country: US (occurrence: US)
  Receive Date: 20160204
  Receipt Date: 20160429
  Transmission Date: 20160815
  Serious: Yes (Other)
  Sender: FDA-Public Use
  Company Number: US-PFIZER INC-2016062919

PATIENT
  Age: 62 Year
  Sex: Male

DRUGS (8)
  1. DEPO-TESTOSTERONE [Suspect]
     Active Substance: TESTOSTERONE CYPIONATE
     Indication: HORMONE REPLACEMENT THERAPY
     Dosage: UNK
     Dates: start: 201401, end: 201408
  2. TESTIM [Suspect]
     Active Substance: TESTOSTERONE
     Indication: HORMONE REPLACEMENT THERAPY
     Dosage: UNK
     Dates: start: 201404, end: 201409
  3. TESTIM [Suspect]
     Active Substance: TESTOSTERONE
     Dosage: 1 DF, DAILY (1 TUBE PER DAY)
     Dates: start: 2014
  4. DEPO-TESTOSTERONE [Suspect]
     Active Substance: TESTOSTERONE CYPIONATE
     Dosage: 1 ML, UNK (EVERY 2 WEEKS)
     Dates: start: 20140326
  5. ANDROGEL [Suspect]
     Active Substance: TESTOSTERONE
     Indication: HORMONE REPLACEMENT THERAPY
     Dosage: UNK
     Dates: start: 201401, end: 201408
  6. ANDROGEL [Suspect]
     Active Substance: TESTOSTERONE
     Dosage: UNK (1.62 %)
     Dates: start: 201401, end: 201403
  7. DEPO-TESTOSTERONE [Suspect]
     Active Substance: TESTOSTERONE CYPIONATE
     Dosage: UNK
     Dates: start: 201402, end: 201403
  8. ANDROGEL [Suspect]
     Active Substance: TESTOSTERONE
     Dosage: 2 DF, DAILY (2 PUMPS PER DAY)
     Dates: start: 201401

REACTIONS (2)
  - Blindness unilateral [Not Recovered/Not Resolved]
  - Cerebrovascular accident [Unknown]

NARRATIVE: CASE EVENT DATE: 20140311
